FAERS Safety Report 4424320-X (Version None)
Quarter: 2004Q3

REPORT INFORMATION
  Report Type: 
  Country: None (occurrence: None)
  Receive Date: 20040809
  Receipt Date: 20040727
  Transmission Date: 20050211
  Serious: Yes (Death, Hospitalization)
  Sender: FDA-Public Use
  Company Number: RS000909-J

PATIENT
  Age: 37 Year
  Sex: Male

DRUGS (3)
  1. PARIET (RABEPRAZOLE) (RABEPRAZOLE SODIUM) [Suspect]
     Indication: GASTRIC ULCER
     Dosage: 10 MG, 1 IN 1 D, PER ORAL
     Route: 048
     Dates: start: 20000224, end: 20000229
  2. SELBEX (TEPRENONE) [Concomitant]
  3. PRIMPERAN TAB [Concomitant]

REACTIONS (14)
  - ANOREXIA [None]
  - ARGININOSUCCINATE SYNTHETASE DEFICIENCY [None]
  - COMA [None]
  - DEPRESSED LEVEL OF CONSCIOUSNESS [None]
  - FATIGUE [None]
  - FEELING ABNORMAL [None]
  - HAEMODIALYSIS [None]
  - HEPAPLASTIN ABNORMAL [None]
  - HEPATIC ENCEPHALOPATHY [None]
  - HEPATIC FUNCTION ABNORMAL [None]
  - HEPATOCELLULAR DAMAGE [None]
  - HYPERAMMONAEMIA [None]
  - HYPOAESTHESIA [None]
  - NAUSEA [None]
